FAERS Safety Report 9125316 (Version 1)
Quarter: 2013Q1

REPORT INFORMATION
  Report Type: Spontaneous
  Country: US (occurrence: US)
  Receive Date: 20130121
  Receipt Date: 20130121
  Transmission Date: 20140127
  Serious: No
  Sender: FDA-Public Use
  Company Number: US-BAYER-2013-002797

PATIENT
  Age: 67 Year
  Sex: Female
  Weight: 56.69 kg

DRUGS (4)
  1. BETASERON [Suspect]
     Indication: MULTIPLE SCLEROSIS
     Dosage: 0.3 MG, QOD
     Route: 058
  2. VITAMIN D [Concomitant]
     Dosage: 2000 U, UNK
  3. AMPYRA [Concomitant]
     Dosage: 10 MG, UNK
  4. DESMOPRESSIN [Concomitant]
     Dosage: 0.2 MG, UNK

REACTIONS (2)
  - Gait disturbance [Unknown]
  - Fatigue [Unknown]
